FAERS Safety Report 4378838-9 (Version None)
Quarter: 2004Q2

REPORT INFORMATION
  Report Type: 
  Country: None (occurrence: None)
  Receive Date: 20040610
  Receipt Date: 20040601
  Transmission Date: 20050107
  Serious: Yes (Hospitalization)
  Sender: FDA-Public Use
  Company Number: GB-JNJFOC-20040600415

PATIENT
  Age: 44 Year
  Sex: Female

DRUGS (4)
  1. REMICADE (INFLIXIMAB, RECOMBINANT) LYOPHILIZED POWDER [Suspect]
     Indication: RHEUMATOID ARTHRITIS
     Dosage: INTRAVENOUS
     Route: 042
     Dates: start: 20020122
  2. CYCLOSPORINE [Concomitant]
  3. DICLOFENAC (DICLOFENAC) [Concomitant]
  4. ACETAMINOPHEN [Concomitant]

REACTIONS (2)
  - ARTHRITIS BACTERIAL [None]
  - SYNOVITIS [None]
